FAERS Safety Report 9652799 (Version 3)
Quarter: 2014Q1

REPORT INFORMATION
  Report Type: Spontaneous
  Country: JP (occurrence: JP)
  Receive Date: 20131029
  Receipt Date: 20140108
  Transmission Date: 20141002
  Serious: Yes (Death, Other)
  Sender: FDA-Public Use
  Company Number: PHHY2012JP004037

PATIENT
  Sex: 0

DRUGS (2)
  1. UTERON [Suspect]
     Indication: BRADYCARDIA FOETAL
     Dosage: (MATERNAL DOSE: 100 UG/MIN)
     Route: 064
  2. AMIODARONE [Suspect]
     Dosage: (MATERNAL EXPOSURE 400 MG)
     Route: 064

REACTIONS (12)
  - Ventricular tachycardia [Fatal]
  - Long QT syndrome congenital [Fatal]
  - Bradycardia foetal [Fatal]
  - Atrioventricular block [Fatal]
  - Foetal death [Fatal]
  - Torsade de pointes [Unknown]
  - Tricuspid valve incompetence [Unknown]
  - Mitral valve incompetence [Unknown]
  - Ventricular fibrillation [Unknown]
  - Condition aggravated [Unknown]
  - Ascites [Unknown]
  - Foetal exposure during pregnancy [Unknown]
